FAERS Safety Report 16502426 (Version 2)
Quarter: 2019Q3

REPORT INFORMATION
  Report Type: Spontaneous
  Country: US (occurrence: US)
  Receive Date: 20190701
  Receipt Date: 20190703
  Transmission Date: 20191004
  Serious: No
  Sender: FDA-Public Use
  Company Number: US-PFIZER INC-2019274219

PATIENT
  Age: 73 Year
  Sex: Female
  Weight: 98.88 kg

DRUGS (2)
  1. NORVASC [Suspect]
     Active Substance: AMLODIPINE BESYLATE
     Indication: ANGINA PECTORIS
  2. NORVASC [Suspect]
     Active Substance: AMLODIPINE BESYLATE
     Indication: HYPERTENSION
     Dosage: 5 MG, ONE TABLET DAILY EVERY OTHER DAY

REACTIONS (6)
  - Asthma [Unknown]
  - Epistaxis [Unknown]
  - Intentional product misuse [Unknown]
  - Headache [Unknown]
  - Emotional disorder [Unknown]
  - Abdominal discomfort [Unknown]
